FAERS Safety Report 4415825-6 (Version None)
Quarter: 2004Q3

REPORT INFORMATION
  Report Type: 
  Country: None (occurrence: None)
  Receive Date: 20040729
  Receipt Date: 20040712
  Transmission Date: 20050211
  Serious: Yes (Hospitalization)
  Sender: FDA-Public Use
  Company Number: REM_00062_2004

PATIENT
  Age: 20 Year
  Sex: Male
  Weight: 80.4 kg

DRUGS (6)
  1. REMODULIN [Suspect]
     Indication: PULMONARY HYPERTENSION
     Dosage: 10 NG/KG/MIN CONTINUOUS SC
     Route: 058
     Dates: start: 20040425
  2. LASIX [Concomitant]
  3. POTASSIUM CHLORIDE [Concomitant]
  4. OXYGEN [Concomitant]
  5. HYDROCODONE [Concomitant]
  6. EXTRA STRENGTH TYLENOL [Concomitant]

REACTIONS (16)
  - ABDOMINAL DISTENSION [None]
  - ABDOMINAL PAIN [None]
  - ALANINE AMINOTRANSFERASE INCREASED [None]
  - ASCITES [None]
  - ASPARTATE AMINOTRANSFERASE INCREASED [None]
  - BLOOD BILIRUBIN INCREASED [None]
  - CHILLS [None]
  - COUGH [None]
  - DEPRESSION [None]
  - DIARRHOEA [None]
  - HEPATIC CONGESTION [None]
  - NAUSEA [None]
  - PLEURAL EFFUSION [None]
  - PNEUMONIA ASPIRATION [None]
  - RIGHT VENTRICULAR FAILURE [None]
  - VOMITING [None]
